FAERS Safety Report 9792522 (Version 3)
Quarter: 2014Q1

REPORT INFORMATION
  Report Type: Spontaneous
  Country: GB (occurrence: GB)
  Receive Date: 20140102
  Receipt Date: 20140211
  Transmission Date: 20141002
  Serious: Yes (Other)
  Sender: FDA-Public Use
  Company Number: GB-ABBVIE-13P-167-1185201-00

PATIENT
  Age: 30 Year
  Sex: Male

DRUGS (4)
  1. EPILIM EC [Suspect]
     Indication: EPILEPSY
     Route: 048
  2. EPILIM EC [Suspect]
     Route: 048
  3. CLOBAZAM [Concomitant]
     Indication: PRODUCT USED FOR UNKNOWN INDICATION
  4. OLANZAPINE [Concomitant]
     Indication: PRODUCT USED FOR UNKNOWN INDICATION
     Dates: start: 201312

REACTIONS (3)
  - Product physical issue [Not Recovered/Not Resolved]
  - Off label use [Not Recovered/Not Resolved]
  - Epilepsy [Unknown]
